FAERS Safety Report 18855145 (Version 2)
Quarter: 2021Q1

REPORT INFORMATION
  Report Type: Spontaneous
  Country: US (occurrence: US)
  Receive Date: 20210205
  Receipt Date: 20210210
  Transmission Date: 20210420
  Serious: Yes (Other)
  Sender: FDA-Public Use
  Company Number: US-REGENERON PHARMACEUTICALS, INC.-2021-13504

PATIENT

DRUGS (2)
  1. EYLEA [Suspect]
     Active Substance: AFLIBERCEPT
     Dosage: 2 MG, Q4W
     Route: 031
     Dates: start: 20210105, end: 20210105
  2. EYLEA [Suspect]
     Active Substance: AFLIBERCEPT
     Indication: RETINAL VEIN OCCLUSION
     Dosage: 2 MG, Q4W,  MORE OFTEN THAN EVERY 4 WEEKS
     Route: 031
     Dates: start: 201606

REACTIONS (3)
  - Endophthalmitis [Not Recovered/Not Resolved]
  - Visual acuity reduced [Recovering/Resolving]
  - Retinal vasculitis [Unknown]

NARRATIVE: CASE EVENT DATE: 20210110
